FAERS Safety Report 4588750-8 (Version None)
Quarter: 2005Q1

REPORT INFORMATION
  Report Type: 
  Country: None (occurrence: None)
  Receive Date: 20050222
  Receipt Date: 20050209
  Transmission Date: 20050727
  Serious: Yes (Hospitalization)
  Sender: FDA-Public Use
  Company Number: FR-BRISTOL-MYERS SQUIBB COMPANY-12855599

PATIENT
  Age: 43 Year
  Sex: Male

DRUGS (7)
  1. VIDEX EC [Suspect]
     Indication: HIV INFECTION
     Route: 048
     Dates: start: 20020715, end: 20041222
  2. ZERIT [Suspect]
     Indication: HIV INFECTION
     Route: 048
     Dates: start: 20020715, end: 20041222
  3. VIREAD [Suspect]
     Indication: HIV INFECTION
     Route: 048
     Dates: start: 20020715, end: 20041222
  4. AKINETON [Concomitant]
     Indication: PSYCHOTIC DISORDER
     Dates: start: 19991215, end: 20041222
  5. CLOZARIL [Concomitant]
     Indication: PSYCHOTIC DISORDER
     Dates: start: 19991215, end: 20041222
  6. INTERFERON ALFA-2B [Concomitant]
     Dates: start: 20030615, end: 20040115
  7. REBETOL [Concomitant]
     Dates: start: 20030615, end: 20040115

REACTIONS (3)
  - CYTOLYTIC HEPATITIS [None]
  - MITOCHONDRIAL CYTOPATHY [None]
  - PANCREATITIS [None]
